FAERS Safety Report 4382184-7 (Version None)
Quarter: 2004Q2

REPORT INFORMATION
  Report Type: 
  Country: None (occurrence: None)
  Receive Date: 20040618
  Receipt Date: 20040618
  Transmission Date: 20050107
  Serious: No
  Sender: FDA-Public Use
  Company Number: None

PATIENT
  Sex: Male
  Weight: 83.9154 kg

DRUGS (3)
  1. ALPRAZOLAM [Suspect]
     Indication: GENERALISED ANXIETY DISORDER
     Dosage: 1 MG QID ORAL
     Route: 048
     Dates: start: 19890111, end: 20040617
  2. ALPRAZOLAM [Suspect]
     Indication: PANIC DISORDER
     Dosage: 1 MG QID ORAL
     Route: 048
     Dates: start: 19890111, end: 20040617
  3. FLUOXETINE HCL [Suspect]
     Indication: MAJOR DEPRESSION
     Dosage: 20 MG BID ORAL
     Route: 048
     Dates: start: 19890111, end: 20040617

REACTIONS (3)
  - ANXIETY [None]
  - PANIC ATTACK [None]
  - PHARMACEUTICAL PRODUCT COMPLAINT [None]
